FAERS Safety Report 6646008-7 (Version None)
Quarter: 2010Q1

REPORT INFORMATION
  Report Type: 
  Country: None (occurrence: None)
  Receive Date: 20100323
  Receipt Date: 20100311
  Transmission Date: 20100710
  Serious: Yes (Other)
  Sender: FDA-Public Use
  Company Number: JP-PFIZER INC-2010021810

PATIENT
  Sex: Male

DRUGS (5)
  1. VFEND [Suspect]
     Indication: BRONCHOPULMONARY ASPERGILLOSIS
     Dosage: 1 DF, 2X/DAY
     Route: 048
     Dates: start: 20090101
  2. VFEND [Suspect]
     Dosage: 1 DF, 1X/DAY
     Route: 048
     Dates: start: 20090101
  3. LANSOPRAZOLE [Concomitant]
     Route: 048
  4. HERBAL PREPARATION [Concomitant]
     Route: 048
  5. LAXATIVES [Concomitant]

REACTIONS (3)
  - MACULAR DEGENERATION [None]
  - METAMORPHOPSIA [None]
  - VISUAL ACUITY REDUCED [None]
